FAERS Safety Report 19092578 (Version 2)
Quarter: 2021Q2

REPORT INFORMATION
  Report Type: Other
  Country: US (occurrence: US)
  Receive Date: 20210405
  Receipt Date: 20210503
  Transmission Date: 20210717
  Serious: No
  Sender: FDA-Public Use
  Company Number: US-APOTEX-2021AP007746

PATIENT
  Sex: Female

DRUGS (1)
  1. ENOXAPARIN SODIUM INJECTION [Suspect]
     Active Substance: ENOXAPARIN SODIUM
     Indication: PRODUCT USED FOR UNKNOWN INDICATION
     Dosage: UNK
     Route: 065

REACTIONS (3)
  - Recalled product [Unknown]
  - Device use confusion [Unknown]
  - Product label issue [Unknown]
